FAERS Safety Report 11392628 (Version 2)
Quarter: 2015Q3

REPORT INFORMATION
  Report Type: Spontaneous
  Country: US (occurrence: US)
  Receive Date: 20150818
  Receipt Date: 20150902
  Transmission Date: 20151125
  Serious: No
  Sender: FDA-Public Use
  Company Number: US-PFIZER INC-2015272093

PATIENT
  Age: 34 Year
  Sex: Male
  Weight: 93 kg

DRUGS (8)
  1. KLONOPIN [Concomitant]
     Active Substance: CLONAZEPAM
     Indication: ANXIETY
     Dosage: 5 MG, 1X/DAY, TAPERING OFF
     Route: 048
     Dates: start: 2015
  2. LYRICA [Suspect]
     Active Substance: PREGABALIN
     Indication: RESTLESS LEGS SYNDROME
  3. METHADONE [Concomitant]
     Active Substance: METHADONE HYDROCHLORIDE
     Indication: PAIN IN EXTREMITY
     Dosage: 20 MG, UNK
     Dates: start: 2007, end: 2012
  4. ZEBETA [Concomitant]
     Active Substance: BISOPROLOL FUMARATE
     Indication: HYPERTENSION
     Dosage: 5 MG, 1X/DAY
     Route: 048
  5. LYRICA [Suspect]
     Active Substance: PREGABALIN
     Indication: NEURALGIA
     Dosage: 75 MG, 3X/DAY
     Dates: start: 2014
  6. METHADONE [Concomitant]
     Active Substance: METHADONE HYDROCHLORIDE
     Dosage: 90 MG, 1X/DAY
     Route: 048
     Dates: start: 2014
  7. ZEBETA [Concomitant]
     Active Substance: BISOPROLOL FUMARATE
     Indication: TACHYCARDIA
  8. LISINOPRIL. [Concomitant]
     Active Substance: LISINOPRIL
     Indication: HYPERTENSION
     Dosage: 30 MG, 1X/DAY
     Route: 048

REACTIONS (3)
  - Neuralgia [Recovering/Resolving]
  - Disease progression [Recovering/Resolving]
  - Body height decreased [Unknown]
